FAERS Safety Report 19213036 (Version 2)
Quarter: 2021Q2

REPORT INFORMATION
  Report Type: Spontaneous
  Country: CA (occurrence: CA)
  Receive Date: 20210504
  Receipt Date: 20210517
  Transmission Date: 20210717
  Serious: Yes (Other)
  Sender: FDA-Public Use
  Company Number: CA-PFIZER INC-2021492751

PATIENT
  Age: 76 Year
  Sex: Female
  Weight: 70 kg

DRUGS (9)
  1. SUCCINYLCHOLINE CHLORIDE. [Suspect]
     Active Substance: SUCCINYLCHOLINE CHLORIDE
     Indication: OXYGEN SATURATION DECREASED
     Dosage: 140 MG
  2. PROPOFOL. [Concomitant]
     Active Substance: PROPOFOL
     Indication: GENERAL ANAESTHESIA
     Dosage: 120 MG
  3. DESFLURANE. [Concomitant]
     Active Substance: DESFLURANE
     Indication: GENERAL ANAESTHESIA
     Dosage: UNK
  4. NEOSTIGMINE. [Concomitant]
     Active Substance: NEOSTIGMINE METHYLSULFATE
     Indication: MYASTHENIA GRAVIS
     Dosage: 2.5 MG
     Route: 042
  5. ROCURONIUM BROMIDE. [Suspect]
     Active Substance: ROCURONIUM BROMIDE
     Indication: GENERAL ANAESTHESIA
     Dosage: 30 MG
  6. PROPOFOL. [Concomitant]
     Active Substance: PROPOFOL
     Indication: OXYGEN SATURATION DECREASED
     Dosage: 50 MG
  7. GLYCOPYRROLATE [GLYCOPYRRONIUM BROMIDE] [Concomitant]
     Active Substance: GLYCOPYRROLATE
     Dosage: 0.4 MG
  8. FENTANYL. [Concomitant]
     Active Substance: FENTANYL
     Indication: GENERAL ANAESTHESIA
     Dosage: 75 UG
  9. OXYGEN. [Concomitant]
     Active Substance: OXYGEN
     Indication: GENERAL ANAESTHESIA
     Dosage: UNK

REACTIONS (2)
  - Atelectasis [Recovering/Resolving]
  - Cholinergic syndrome [Recovering/Resolving]
